FAERS Safety Report 9391489 (Version 1)
Quarter: 2013Q3

REPORT INFORMATION
  Report Type: Spontaneous
  Country: JP (occurrence: JP)
  Receive Date: 20130709
  Receipt Date: 20130709
  Transmission Date: 20140515
  Serious: Yes (Other)
  Sender: FDA-Public Use
  Company Number: JP-ASTRAZENECA-2013SE49796

PATIENT
  Age: 38 Year
  Sex: Female

DRUGS (1)
  1. EMLA CREAM [Suspect]
     Indication: LASER THERAPY
     Route: 061
     Dates: start: 20130621

REACTIONS (3)
  - Blister [Unknown]
  - Skin erosion [Unknown]
  - Erythema [Unknown]
